FAERS Safety Report 6539221-0 (Version None)
Quarter: 2010Q1

REPORT INFORMATION
  Report Type: 
  Country: None (occurrence: None)
  Receive Date: 20100115
  Receipt Date: 20100105
  Transmission Date: 20100710
  Serious: Yes (Other)
  Sender: FDA-Public Use
  Company Number: US-ELI_LILLY_AND_COMPANY-US201001000835

PATIENT
  Sex: Female

DRUGS (9)
  1. CYMBALTA [Suspect]
     Dosage: 60 MG, DAILY (1/D)
  2. SPIRIVA [Concomitant]
  3. NEXIUM [Concomitant]
  4. ZOCOR [Concomitant]
  5. PREMARIN [Concomitant]
  6. AMBIEN [Concomitant]
  7. NEURONTIN [Concomitant]
  8. COZAAR [Concomitant]
  9. ELAVIL [Concomitant]

REACTIONS (2)
  - DYSPHAGIA [None]
  - THROAT CANCER [None]
